FAERS Safety Report 5358177-X (Version None)
Quarter: 2007Q2

REPORT INFORMATION
  Report Type: 
  Country: None (occurrence: None)
  Receive Date: 20070530
  Receipt Date: 20061117
  Transmission Date: 20071010
  Serious: Yes (Other)
  Sender: FDA-Public Use
  Company Number: US200605004685

PATIENT
  Age: 25 Year
  Sex: Male
  Weight: 113.4 kg

DRUGS (4)
  1. ZYPREXA [Suspect]
     Dosage: 2.5 MG
     Dates: start: 20000612, end: 20040825
  2. RISPERIDONE [Concomitant]
  3. DIVALPROEX SODIUM [Concomitant]
  4. CLOMIPRAMINE HCL [Concomitant]

REACTIONS (3)
  - DIABETES MELLITUS [None]
  - EMOTIONAL DISTRESS [None]
  - PANCREATITIS [None]
